FAERS Safety Report 21630443 (Version 3)
Quarter: 2025Q4

REPORT INFORMATION
  Report Type: Report from Study
  Country: ZA (occurrence: ZA)
  Receive Date: 20221122
  Receipt Date: 20251110
  Transmission Date: 20260118
  Serious: Yes (Other)
  Sender: ROCHE
  Company Number: ZA-ROCHE-3220029

PATIENT
  Sex: Male

DRUGS (2)
  1. OCREVUS [Suspect]
     Active Substance: OCRELIZUMAB
     Indication: Relapsing-remitting multiple sclerosis
     Dosage: THEREAFTER EVERY SIX MONTHS
     Route: 042
     Dates: start: 20220524
  2. OCREVUS [Suspect]
     Active Substance: OCRELIZUMAB
     Dosage: THEREAFTER EVERY SIX MONTHS
     Route: 042

REACTIONS (8)
  - Demyelination [Unknown]
  - Magnetic resonance imaging abnormal [Unknown]
  - Magnetic resonance imaging spinal abnormal [Unknown]
  - Sinus disorder [Unknown]
  - Mastoid disorder [Unknown]
  - Cerebral disorder [Unknown]
  - Cerebral disorder [Unknown]
  - Spinal disorder [Unknown]
